FAERS Safety Report 7666746-7 (Version None)
Quarter: 2011Q3

REPORT INFORMATION
  Report Type: 
  Country: None (occurrence: None)
  Receive Date: 20110806
  Receipt Date: 20110630
  Transmission Date: 20111222
  Serious: No
  Sender: FDA-Public Use
  Company Number: US-ABBOTT-11P-163-0836183-00

PATIENT
  Sex: Female

DRUGS (5)
  1. SYNTHROID [Concomitant]
     Indication: HORMONE REPLACEMENT THERAPY
  2. WELCHOL [Concomitant]
     Indication: BLOOD CHOLESTEROL INCREASED
  3. CALCIUM +D [Concomitant]
     Indication: VITAMIN SUPPLEMENTATION
  4. FISH OIL [Concomitant]
     Indication: BLOOD CHOLESTEROL INCREASED
  5. NIASPAN [Suspect]
     Indication: HIGH DENSITY LIPOPROTEIN DECREASED
     Dosage: AT BEDTIME
     Dates: start: 20110624

REACTIONS (2)
  - PRURITUS [None]
  - BURNING SENSATION [None]
